FAERS Safety Report 15976688 (Version 2)
Quarter: 2019Q1

REPORT INFORMATION
  Report Type: Spontaneous
  Country: GB (occurrence: GB)
  Receive Date: 20190218
  Receipt Date: 20190315
  Transmission Date: 20190418
  Serious: Yes (Death)
  Sender: FDA-Public Use
  Company Number: GB-ACTELION-A-CH2019-186200

PATIENT

DRUGS (1)
  1. UPTRAVI [Suspect]
     Active Substance: SELEXIPAG
     Indication: PULMONARY ARTERIAL HYPERTENSION
     Route: 048

REACTIONS (2)
  - Pericardial haemorrhage [Fatal]
  - Arterial rupture [Fatal]
